FAERS Safety Report 9107506 (Version 1)
Quarter: 2013Q1

REPORT INFORMATION
  Report Type: Spontaneous
  Country: IT (occurrence: IT)
  Receive Date: 20130222
  Receipt Date: 20130222
  Transmission Date: 20140127
  Serious: Yes (Other)
  Sender: FDA-Public Use
  Company Number: IT-TEVA-386971ISR

PATIENT
  Age: 70 Year
  Sex: Male
  Weight: 71 kg

DRUGS (4)
  1. FLUOROURACILE [Suspect]
     Indication: GASTRIC CANCER
     Dosage: 3644 MILLIGRAM DAILY;
     Route: 042
     Dates: start: 20120524, end: 20121128
  2. TRIATEC [Concomitant]
     Indication: HYPERTENSION
  3. NOVONORM [Concomitant]
     Indication: DIABETES MELLITUS
  4. ACIDO LEVO FOLINICO [Concomitant]

REACTIONS (2)
  - Abdominal pain [Unknown]
  - Neutrophilia [Unknown]
